FAERS Safety Report 17893094 (Version 2)
Quarter: 2020Q2

REPORT INFORMATION
  Report Type: Spontaneous
  Country: US (occurrence: US)
  Receive Date: 20200614
  Receipt Date: 20200619
  Transmission Date: 20200714
  Serious: No
  Sender: FDA-Public Use
  Company Number: US-ASTRAZENECA-2020SE75680

PATIENT
  Age: 836 Month
  Sex: Male
  Weight: 113.4 kg

DRUGS (1)
  1. BYDUREON BCISE [Suspect]
     Active Substance: EXENATIDE
     Indication: TYPE 2 DIABETES MELLITUS
     Route: 058
     Dates: start: 202003

REACTIONS (5)
  - Injection site nodule [Not Recovered/Not Resolved]
  - Injection site extravasation [Unknown]
  - Device malfunction [Unknown]
  - Incorrect dose administered by device [Unknown]
  - Intentional device misuse [Unknown]

NARRATIVE: CASE EVENT DATE: 202003
